FAERS Safety Report 6126059-1 (Version None)
Quarter: 2009Q1

REPORT INFORMATION
  Report Type: 
  Country: None (occurrence: None)
  Receive Date: 20090320
  Receipt Date: 20090311
  Transmission Date: 20090719
  Serious: Yes (Hospitalization, Other)
  Sender: FDA-Public Use
  Company Number: DE-JNJFOC-20090302746

PATIENT
  Age: 77 Year
  Sex: Male

DRUGS (11)
  1. RISPERDAL [Suspect]
     Route: 048
  2. RISPERDAL [Suspect]
     Route: 048
  3. RISPERDAL [Suspect]
     Route: 048
  4. RISPERDAL [Suspect]
     Indication: DRUG USE FOR UNKNOWN INDICATION
     Route: 048
  5. DOMINAL [Suspect]
     Indication: DRUG USE FOR UNKNOWN INDICATION
     Route: 048
  6. DELIX [Concomitant]
     Route: 048
  7. DIGITOXIN TAB [Concomitant]
     Route: 048
  8. FUROSEMID [Concomitant]
     Route: 048
  9. TAMSULOSIN HCL [Concomitant]
     Route: 048
  10. MARCUMAR [Concomitant]
     Route: 048
  11. ARICEPT [Concomitant]
     Route: 048

REACTIONS (5)
  - CEREBROVASCULAR DISORDER [None]
  - CLONUS [None]
  - HEMIPARESIS [None]
  - HOSPITALISATION [None]
  - INFLAMMATION [None]
